FAERS Safety Report 8196678-X (Version None)
Quarter: 2012Q1

REPORT INFORMATION
  Report Type: 
  Country: None (occurrence: None)
  Receive Date: 20120309
  Receipt Date: 20120303
  Transmission Date: 20120608
  Serious: Yes (Other)
  Sender: FDA-Public Use
  Company Number: US-BAYER-2011-091705

PATIENT
  Age: 26 Year
  Sex: Female
  Weight: 70 kg

DRUGS (10)
  1. YASMIN [Suspect]
     Dosage: UNK
     Route: 048
     Dates: start: 20050801, end: 20051101
  2. ORTHO CYCLEN-28 [Concomitant]
     Dosage: UNK
  3. YAZ [Suspect]
     Dosage: UNK
     Route: 048
     Dates: start: 20051101, end: 20060601
  4. ORTHO CYCLEN-28 [Concomitant]
     Dosage: UNK
  5. CHOLECYSTOKININ [Concomitant]
     Indication: CHOLECYSTITIS
     Dosage: UNK
     Route: 042
     Dates: start: 20061122
  6. DIURETICS [Concomitant]
  7. ORTHO CYCLEN-28 [Concomitant]
     Dosage: UNK
     Dates: start: 20051005, end: 20090422
  8. ORTHO TRI-CYCLEN [Concomitant]
     Dosage: UNK
     Dates: start: 20060601
  9. ORTHO TRI-CYCLEN [Concomitant]
     Indication: CONTRACEPTION
     Dosage: UNK
     Dates: start: 19970101, end: 20050801
  10. NSAID'S [Concomitant]

REACTIONS (8)
  - CHOLECYSTITIS CHRONIC [None]
  - ANHEDONIA [None]
  - INJURY [None]
  - PAIN [None]
  - GENERAL PHYSICAL HEALTH DETERIORATION [None]
  - EMOTIONAL DISTRESS [None]
  - ANXIETY [None]
  - CHOLECYSTECTOMY [None]
